FAERS Safety Report 7913020-7 (Version None)
Quarter: 2011Q4

REPORT INFORMATION
  Report Type: 
  Country: None (occurrence: None)
  Receive Date: 20111114
  Receipt Date: 20111114
  Transmission Date: 20120403
  Serious: Yes (Life-Threatening)
  Sender: FDA-Public Use
  Company Number: FR-BAYER-2011-109664

PATIENT
  Age: 57 Year
  Sex: Female

DRUGS (1)
  1. ULTRAVIST 150 [Suspect]
     Indication: PRODUCT USED FOR UNKNOWN INDICATION
     Dosage: 90 ML, ONCE
     Route: 042
     Dates: start: 20111024, end: 20111024

REACTIONS (5)
  - HYPERSENSITIVITY [None]
  - VOMITING [None]
  - NECK PAIN [None]
  - MALAISE [None]
  - HEADACHE [None]
